FAERS Safety Report 14191437 (Version 3)
Quarter: 2018Q1

REPORT INFORMATION
  Report Type: Spontaneous
  Country: CH (occurrence: CH)
  Receive Date: 20171115
  Receipt Date: 20180111
  Transmission Date: 20180508
  Serious: Yes (Hospitalization, Other)
  Sender: FDA-Public Use
  Company Number: CH-NAPPMUNDI-GBR-2017-0050625

PATIENT
  Age: 82 Year
  Sex: Female
  Weight: 60 kg

DRUGS (18)
  1. IMIGRAN                            /01044801/ [Suspect]
     Active Substance: SUMATRIPTAN
     Indication: HEADACHE
     Dosage: 50 MG, UNK
     Route: 048
     Dates: start: 20171024, end: 20171024
  2. ATORVASTATIN [Concomitant]
     Active Substance: ATORVASTATIN
     Indication: HYPERLIPIDAEMIA
     Dosage: 20 MG, DAILY
     Route: 048
     Dates: start: 201705
  3. OXYNORM [Suspect]
     Active Substance: OXYCODONE HYDROCHLORIDE
     Indication: PAIN
     Dosage: 5 MG, UNK
     Route: 048
     Dates: start: 20171024, end: 20171024
  4. TARGIN [Suspect]
     Active Substance: NALOXONE HYDROCHLORIDE\OXYCODONE HYDROCHLORIDE
     Indication: PRODUCT USED FOR UNKNOWN INDICATION
     Dosage: UNK, Q12H,  [10/5MG STRENGTH]
     Route: 048
     Dates: start: 201705, end: 201705
  5. BELOC ZOK [Concomitant]
     Active Substance: METOPROLOL SUCCINATE
     Indication: HYPERTENSION
     Dosage: 25 MG, BID
     Route: 048
     Dates: start: 201705
  6. IBANDRONATE [Concomitant]
     Active Substance: IBANDRONATE SODIUM
     Indication: OSTEOPOROSIS
     Dosage: 3 MG, EVERY 3 MONTHS
     Route: 042
     Dates: start: 2012
  7. OVESTIN [Concomitant]
     Active Substance: ESTRIOL
     Indication: OESTROGEN DEFICIENCY
     Dosage: 0.5 MG, DAILY
     Route: 048
     Dates: start: 201705
  8. DAFALGAN [Concomitant]
     Active Substance: ACETAMINOPHEN
     Indication: PAIN
     Route: 048
  9. PANTOPRAZOL [Concomitant]
     Active Substance: PANTOPRAZOLE SODIUM
     Indication: GASTROOESOPHAGEAL REFLUX DISEASE
     Dosage: 40 MG, DAILY
     Route: 048
     Dates: start: 201705
  10. TRAMADOL HYDROCHLORIDE. [Suspect]
     Active Substance: TRAMADOL HYDROCHLORIDE
     Indication: PRODUCT USED FOR UNKNOWN INDICATION
     Route: 065
  11. CALCIMAGON D3 [Concomitant]
     Active Substance: CALCIUM\CHOLECALCIFEROL
     Indication: OSTEOPOROSIS
     Dosage: 1 DF, DAILY (500MG/800 I.U.)
     Route: 048
     Dates: start: 201705
  12. VITARUBIN                          /00091803/ [Concomitant]
     Indication: VITAMIN B12 DEFICIENCY
     Dosage: 1 MG, QOW
     Route: 030
     Dates: start: 201705
  13. PALEXIA [Concomitant]
     Active Substance: TAPENTADOL HYDROCHLORIDE
     Indication: PAIN
     Dosage: 50 MG, TID
     Route: 048
     Dates: start: 201705
  14. PREDNISONE. [Concomitant]
     Active Substance: PREDNISONE
     Indication: POLYMYALGIA RHEUMATICA
     Dosage: 5 MG, DAILY
     Route: 048
     Dates: start: 201705
  15. NOVALGIN (METAMIZOLE SODIUM) [Concomitant]
     Active Substance: METAMIZOLE SODIUM
     Indication: PAIN
     Route: 048
  16. MAGNESIOCARD [Concomitant]
     Active Substance: MAGNESIUM ASPARTATE HYDROCHLORIDE
     Indication: MUSCLE SPASMS
     Dosage: 10 MMOL, DAILY
     Route: 048
     Dates: start: 201705
  17. TEMESTA                            /00273201/ [Concomitant]
     Active Substance: LORAZEPAM
     Indication: FEAR
     Dosage: 0.5 MG, DAILY
     Route: 048
     Dates: start: 201705
  18. ACIDUM FOLICUM [Concomitant]
     Active Substance: FOLIC ACID
     Indication: ANAEMIA
     Dosage: 5 MG, DAILY
     Route: 048
     Dates: start: 201705

REACTIONS (16)
  - Hyperreflexia [Recovered/Resolved]
  - Clonus [Recovered/Resolved]
  - Psychomotor hyperactivity [Recovered/Resolved]
  - Headache [Recovered/Resolved]
  - Mydriasis [Recovered/Resolved]
  - Vomiting [Recovered/Resolved]
  - Delirium [Recovering/Resolving]
  - Systolic hypertension [Recovered/Resolved]
  - Tremor [Recovered/Resolved]
  - Logorrhoea [Recovered/Resolved]
  - Loss of consciousness [Recovered/Resolved]
  - Serotonin syndrome [Recovered/Resolved]
  - Drug intolerance [Unknown]
  - Disorientation [Recovered/Resolved]
  - Nausea [Recovered/Resolved]
  - Hyperhidrosis [Recovered/Resolved]

NARRATIVE: CASE EVENT DATE: 201705
